FAERS Safety Report 24131614 (Version 6)
Quarter: 2025Q2

REPORT INFORMATION
  Report Type: Spontaneous
  Country: US (occurrence: US)
  Receive Date: 20240724
  Receipt Date: 20250626
  Transmission Date: 20250717
  Serious: Yes (Other)
  Sender: PFIZER
  Company Number: US-PFIZER INC-PV202400096470

PATIENT
  Age: 72 Year
  Sex: Female

DRUGS (2)
  1. IBRANCE [Suspect]
     Active Substance: PALBOCICLIB
  2. JARDIANCE [Concomitant]
     Active Substance: EMPAGLIFLOZIN

REACTIONS (13)
  - Parkinson^s disease [Recovering/Resolving]
  - Rash [Unknown]
  - Urticaria [Recovered/Resolved]
  - Urinary tract infection [Unknown]
  - Hot flush [Unknown]
  - Vomiting [Recovering/Resolving]
  - Gastrointestinal disorder [Unknown]
  - Nausea [Recovering/Resolving]
  - Fatigue [Unknown]
  - Gastrooesophageal reflux disease [Unknown]
  - Dizziness [Unknown]
  - Fall [Unknown]
  - Contusion [Recovered/Resolved]

NARRATIVE: CASE EVENT DATE: 20250101
